FAERS Safety Report 5689186-9 (Version None)
Quarter: 2008Q1

REPORT INFORMATION
  Report Type: 
  Country: None (occurrence: None)
  Receive Date: 20080331
  Receipt Date: 20080327
  Transmission Date: 20080703
  Serious: Yes (Other)
  Sender: FDA-Public Use
  Company Number: US-GILEAD-2008-0015783

PATIENT
  Sex: Female

DRUGS (5)
  1. LETAIRIS [Suspect]
     Indication: PULMONARY HYPERTENSION
     Route: 048
     Dates: start: 20080101
  2. SYMBICORT [Concomitant]
     Indication: PULMONARY HYPERTENSION
     Dosage: 2 PUFFS IN THE AM AND 1 PUFFF IN THE PM
     Route: 055
  3. LORAZEPAM [Concomitant]
     Indication: ANXIETY
  4. HYDROCORTISONE [Concomitant]
     Indication: HAEMORRHOIDS
     Route: 061
  5. LIDOCAINE [Concomitant]
     Indication: HAEMORRHOIDS
     Route: 061

REACTIONS (6)
  - CRYING [None]
  - DEPRESSION [None]
  - DIZZINESS [None]
  - DYSPNOEA [None]
  - INFLUENZA [None]
  - POST PROCEDURAL HAEMORRHAGE [None]
